FAERS Safety Report 19619724 (Version 1)
Quarter: 2021Q3

REPORT INFORMATION
  Report Type: Spontaneous
  Country: US (occurrence: US)
  Receive Date: 20210728
  Receipt Date: 20210728
  Transmission Date: 20211014
  Serious: No
  Sender: FDA-Public Use
  Company Number: US-ROCHE-2696971

PATIENT
  Age: 63 Year
  Sex: Male
  Weight: 83.7 kg

DRUGS (4)
  1. XELODA [Suspect]
     Active Substance: CAPECITABINE
     Indication: PANCREATIC CARCINOMA
     Route: 048
     Dates: start: 20200914
  2. XELODA [Suspect]
     Active Substance: CAPECITABINE
     Dosage: FOR 14 DAYS ON, 7 DAYS OFF, THERAPY ONGOING:NO
     Route: 048
     Dates: start: 20200810, end: 20201105
  3. GEMCITABINE. [Concomitant]
     Active Substance: GEMCITABINE
     Indication: PANCREATIC CARCINOMA
     Dosage: ON 14 DAYS CYCLE, THERAPY ONGOING:NO
     Route: 042
     Dates: start: 20201008, end: 20201105
  4. TAXOTERE [Concomitant]
     Active Substance: DOCETAXEL
     Indication: PANCREATIC CARCINOMA
     Dosage: ON 14 DAYS CYCLE, THERAPY ONGOING:NO
     Route: 042
     Dates: start: 20201008, end: 20201105

REACTIONS (4)
  - Abdominal discomfort [Unknown]
  - Abdominal discomfort [Recovered/Resolved]
  - Intentional product use issue [Unknown]
  - Off label use [Unknown]

NARRATIVE: CASE EVENT DATE: 20200914
